FAERS Safety Report 11500492 (Version 2)
Quarter: 2017Q1

REPORT INFORMATION
  Report Type: Spontaneous
  Country: US (occurrence: US)
  Receive Date: 20150914
  Receipt Date: 20170209
  Transmission Date: 20170428
  Serious: No
  Sender: FDA-Public Use
  Company Number: US-PFIZER INC-2015293789

PATIENT
  Age: 62 Year
  Sex: Female
  Weight: 100.7 kg

DRUGS (11)
  1. LYRICA [Suspect]
     Active Substance: PREGABALIN
     Indication: NERVOUS SYSTEM DISORDER
  2. OXYCODONE [Concomitant]
     Active Substance: OXYCODONE
     Indication: BACK PAIN
     Dosage: 30 MG, AS NEEDED (EVERY 6 HOURS AS NEEDED)
  3. TERBINAFINE. [Concomitant]
     Active Substance: TERBINAFINE
     Indication: INFECTION
     Dosage: 250 MG, 1X/DAY (ON THE MEDICATION FOR 30 DAYS, ABOUT TO TAKE LAST PILL)
     Dates: start: 20170106
  4. OMEPRAZOLE. [Concomitant]
     Active Substance: OMEPRAZOLE
     Indication: GASTROOESOPHAGEAL REFLUX DISEASE
     Dosage: 20 MG, UNK (ONLY TAKES PRODUCT AS NEEDED, NOT DAILY)
     Dates: start: 2000
  5. CARVEDILOL. [Concomitant]
     Active Substance: CARVEDILOL
     Indication: BLOOD PRESSURE ABNORMAL
     Dosage: 25 MG, 2X/DAY (WITH FOOD)
     Dates: start: 2000
  6. PRAVASTATIN. [Concomitant]
     Active Substance: PRAVASTATIN
     Indication: BLOOD CHOLESTEROL ABNORMAL
     Dosage: 80 MG, 1X/DAY (EVERYNIGHT AT BEDTIME)
     Dates: start: 2010
  7. LISINOPRIL HCTZ [Concomitant]
     Active Substance: HYDROCHLOROTHIAZIDE\LISINOPRIL
     Indication: BLOOD PRESSURE ABNORMAL
     Dosage: UNK UNK, 1X/DAY (LISINOPRIL: 25MG/HYDROCHLOROTHIAZIDE: 25 MG)
     Dates: start: 2000
  8. GLIPIZIDE. [Concomitant]
     Active Substance: GLIPIZIDE
     Indication: DIABETES MELLITUS
     Dosage: 5 MG, 3X/DAY (TAKES ONE BEFORE BREAKFAST AND TWO BEFORE DINNER)
     Dates: start: 201601
  9. LYRICA [Suspect]
     Active Substance: PREGABALIN
     Indication: FIBROMYALGIA
     Dosage: 300 MG, 2X/DAY (IN THE MORNING AND EVENING)
     Route: 048
  10. METHADONE [Concomitant]
     Active Substance: METHADONE HYDROCHLORIDE
     Indication: BACK PAIN
     Dosage: TWO 10 MG EVERY 8 HOURS AS NEEDED
  11. MELOXICAM. [Concomitant]
     Active Substance: MELOXICAM
     Indication: GOUT
     Dosage: 15 MG, 1X/DAY (ONLY TAKES AS NEEDED, NOT DAILY)
     Dates: start: 2015

REACTIONS (9)
  - Malaise [Unknown]
  - Asthenia [Not Recovered/Not Resolved]
  - Pyrexia [Unknown]
  - Influenza [Unknown]
  - Pain [Not Recovered/Not Resolved]
  - Nasopharyngitis [Unknown]
  - Decreased appetite [Not Recovered/Not Resolved]
  - Bedridden [Unknown]
  - Withdrawal syndrome [Unknown]

NARRATIVE: CASE EVENT DATE: 20170202
